APPROVED DRUG PRODUCT: VIVELLE
Active Ingredient: ESTRADIOL
Strength: 0.075MG/24HR
Dosage Form/Route: SYSTEM;TRANSDERMAL
Application: N020323 | Product #003
Applicant: SANDOZ INC
Approved: Oct 28, 1994 | RLD: No | RS: No | Type: DISCN